FAERS Safety Report 21459677 (Version 1)
Quarter: 2022Q4

REPORT INFORMATION
  Report Type: Spontaneous
  Country: DE (occurrence: DE)
  Receive Date: 20221014
  Receipt Date: 20221014
  Transmission Date: 20230112
  Serious: Yes (Hospitalization)
  Sender: FDA-Public Use
  Company Number: DE-MYLANLABS-2022M1113923

PATIENT
  Sex: Female
  Weight: 23.2 kg

DRUGS (1)
  1. CYSTEAMINE HYDROCHLORIDE [Suspect]
     Active Substance: CYSTEAMINE HYDROCHLORIDE
     Indication: Cystinosis
     Dosage: UNK  QD (63 MG/KG/DAY)
     Route: 048

REACTIONS (3)
  - Blood potassium decreased [Unknown]
  - Drug intolerance [Unknown]
  - Vomiting [Unknown]
